FAERS Safety Report 9033188 (Version 3)
Quarter: 2013Q1

REPORT INFORMATION
  Report Type: Report from Study
  Country: JP (occurrence: JP)
  Receive Date: 20130128
  Receipt Date: 20130301
  Transmission Date: 20140127
  Serious: Yes (Hospitalization)
  Sender: FDA-Public Use
  Company Number: JP-PFIZER INC-2013024609

PATIENT
  Age: 50 Year
  Sex: Male
  Weight: 60.6 kg

DRUGS (15)
  1. IRINOTECAN HCL [Suspect]
     Indication: COLON CANCER
     Dosage: 313.2 MG/BODY
     Dates: start: 20120731
  2. IRINOTECAN HCL [Suspect]
     Dosage: 208.8 MG/BODY
     Dates: end: 20130130
  3. FLUOROURACIL [Suspect]
     Indication: COLON CANCER
     Dosage: 696 MG/BODY
     Route: 040
     Dates: start: 20120731
  4. FLUOROURACIL [Suspect]
     Dosage: 4176 MG/BODY INTRAVENOUS INFUSION
     Route: 042
     Dates: start: 20120731
  5. FLUOROURACIL [Suspect]
     Dosage: 0 MG/BODY
     Route: 040
  6. FLUOROURACIL [Suspect]
     Dosage: 2784 MG/BODY, INTRAVENOUS INFUSION
     Route: 042
     Dates: end: 20130130
  7. FOLINIC ACID [Suspect]
     Indication: COLON CANCER
     Dosage: 696 MG/BODY
     Dates: start: 20120731
  8. FOLINIC ACID [Suspect]
     Dosage: 696 MG/BODY
     Dates: end: 20130130
  9. BLINDED THERAPY [Suspect]
     Indication: COLON CANCER
     Dosage: 540.8 MG/BODY
     Dates: start: 20120731
  10. BLINDED THERAPY [Suspect]
     Dosage: 405.6 MG/BODY
  11. OXYCONTIN [Concomitant]
     Dosage: UNK
     Dates: start: 20120403
  12. LOXOPROFEN [Concomitant]
     Dosage: UNK
     Dates: start: 20111124
  13. MAGMITT [Concomitant]
     Dosage: UNK
     Dates: start: 20120403
  14. OXINORM [Concomitant]
     Dosage: UNK
     Dates: start: 20121227
  15. LASIX [Concomitant]
     Dosage: UNK
     Dates: start: 20121101

REACTIONS (2)
  - Interstitial lung disease [Recovering/Resolving]
  - Dyspnoea [Recovering/Resolving]
